FAERS Safety Report 6076857-8 (Version None)
Quarter: 2009Q1

REPORT INFORMATION
  Report Type: 
  Country: None (occurrence: None)
  Receive Date: 20090213
  Receipt Date: 20090202
  Transmission Date: 20090719
  Serious: Yes (Hospitalization)
  Sender: FDA-Public Use
  Company Number: AT-ELI_LILLY_AND_COMPANY-AT200902000298

PATIENT
  Age: 62 Year
  Sex: Male

DRUGS (5)
  1. ZYPREXA [Suspect]
     Indication: DEPRESSION
     Dosage: 10 MG, DAILY (1/D)
     Dates: end: 20081114
  2. TRUXAL [Concomitant]
     Dosage: 50 MG, DAILY (1/D)
     Dates: end: 20081114
  3. TRITTICO [Concomitant]
     Dosage: 150 MG, DAILY (1/D)
     Dates: end: 20081114
  4. THYREX [Concomitant]
     Dosage: 0.16 MG, DAILY (1/D)
  5. SAROTEN [Concomitant]
     Dosage: 50 MG, DAILY (1/D)
     Dates: start: 20081124

REACTIONS (12)
  - ALANINE AMINOTRANSFERASE INCREASED [None]
  - ASPARTATE AMINOTRANSFERASE INCREASED [None]
  - BACK PAIN [None]
  - BLOOD CREATINE PHOSPHOKINASE INCREASED [None]
  - BLOOD LACTATE DEHYDROGENASE INCREASED [None]
  - HOSPITALISATION [None]
  - INTENTIONAL DRUG MISUSE [None]
  - MUSCLE DISORDER [None]
  - MYOSITIS [None]
  - OEDEMA [None]
  - OEDEMA PERIPHERAL [None]
  - TRANSAMINASES INCREASED [None]
